FAERS Safety Report 6197436-8 (Version None)
Quarter: 2009Q2

REPORT INFORMATION
  Report Type: 
  Country: None (occurrence: None)
  Receive Date: 20090518
  Receipt Date: 20090511
  Transmission Date: 20091009
  Serious: Yes (Hospitalization)
  Sender: FDA-Public Use
  Company Number: SPV1-2008-02613

PATIENT
  Sex: Male

DRUGS (4)
  1. FOSRENOL [Suspect]
     Indication: HYPERPHOSPHATAEMIA
     Dosage: 1000 MG, 3X/DAY TID, ORAL
     Route: 048
     Dates: start: 20070101
  2. ATENOLOL [Concomitant]
  3. TUMS /00108001/ (CALCIUM CARBONATE) [Concomitant]
  4. HECTOROL [Concomitant]

REACTIONS (4)
  - ABDOMINAL PAIN [None]
  - GASTRIC ULCER [None]
  - GASTROINTESTINAL HAEMORRHAGE [None]
  - HYPERPARATHYROIDISM [None]
